FAERS Safety Report 4410469-4 (Version None)
Quarter: 2004Q3

REPORT INFORMATION
  Report Type: 
  Country: None (occurrence: None)
  Receive Date: 20040729
  Receipt Date: 20040719
  Transmission Date: 20050211
  Serious: Yes (Hospitalization)
  Sender: FDA-Public Use
  Company Number: GB-BRISTOL-MYERS SQUIBB COMPANY-12643953

PATIENT
  Age: 37 Year
  Sex: Female

DRUGS (6)
  1. REYATAZ [Suspect]
     Indication: HIV INFECTION
     Dosage: ONCE DAILY
     Route: 048
     Dates: start: 20040501, end: 20040710
  2. TRIZIVIR [Suspect]
     Indication: HIV INFECTION
     Route: 048
     Dates: start: 20040501, end: 20040710
  3. COTRIM [Concomitant]
     Indication: INFECTION PROPHYLAXIS
     Dosage: ^960 MG^
     Route: 048
  4. COD LIVER OIL [Concomitant]
     Route: 048
  5. BETA CAROTENE [Concomitant]
     Route: 048
  6. EVENING PRIMROSE OIL [Concomitant]
     Route: 048

REACTIONS (5)
  - BLOOD BILIRUBIN INCREASED [None]
  - INFLUENZA LIKE ILLNESS [None]
  - JAUNDICE [None]
  - NAUSEA [None]
  - VOMITING [None]
